FAERS Safety Report 12540737 (Version 2)
Quarter: 2016Q3

REPORT INFORMATION
  Report Type: Spontaneous
  Country: US (occurrence: US)
  Receive Date: 20160708
  Receipt Date: 20160822
  Transmission Date: 20161109
  Serious: Yes (Other)
  Sender: FDA-Public Use
  Company Number: US-009507513-1606USA014282

PATIENT
  Age: 20 Year
  Sex: Female

DRUGS (6)
  1. IRINOTECAN HYDROCHLORIDE. [Suspect]
     Active Substance: IRINOTECAN HYDROCHLORIDE
     Dosage: 1 CYCLE
     Dates: start: 201407
  2. TEMODAR [Suspect]
     Active Substance: TEMOZOLOMIDE
     Indication: MEDULLOBLASTOMA RECURRENT
     Dosage: 4 CYCLES
     Route: 048
     Dates: start: 201311
  3. TEMODAR [Suspect]
     Active Substance: TEMOZOLOMIDE
     Dosage: 1 CYCLE
     Route: 048
     Dates: start: 201407
  4. BEVACIZUMAB [Suspect]
     Active Substance: BEVACIZUMAB
     Indication: MEDULLOBLASTOMA RECURRENT
     Dosage: 4 CYCLES
     Dates: start: 201311
  5. IRINOTECAN HYDROCHLORIDE. [Suspect]
     Active Substance: IRINOTECAN HYDROCHLORIDE
     Indication: MEDULLOBLASTOMA RECURRENT
     Dosage: 4 CYCLES
     Dates: start: 201311
  6. BEVACIZUMAB [Suspect]
     Active Substance: BEVACIZUMAB
     Dosage: 1 CYCLE
     Dates: start: 201407

REACTIONS (4)
  - Malaise [Unknown]
  - Drug effect incomplete [Unknown]
  - Malignant neoplasm progression [Unknown]
  - Diarrhoea [Unknown]

NARRATIVE: CASE EVENT DATE: 2014
